FAERS Safety Report 6221473-8 (Version None)
Quarter: 2009Q2

REPORT INFORMATION
  Report Type: 
  Country: None (occurrence: None)
  Receive Date: 20090610
  Receipt Date: 20090605
  Transmission Date: 20091009
  Serious: Yes (Other)
  Sender: FDA-Public Use
  Company Number: CA-ASTRAZENECA-2009UW14057

PATIENT
  Age: 28551 Day
  Sex: Female

DRUGS (1)
  1. XYLOCAINE OINTMENT [Suspect]
     Indication: PAIN
     Route: 061
     Dates: start: 20090505, end: 20090507

REACTIONS (1)
  - APPLICATION SITE IRRITATION [None]
